FAERS Safety Report 7188774-0 (Version None)
Quarter: 2010Q4

REPORT INFORMATION
  Report Type: 
  Country: None (occurrence: None)
  Receive Date: 20101222
  Receipt Date: 20100727
  Transmission Date: 20110411
  Serious: Yes (Other)
  Sender: FDA-Public Use
  Company Number: US-AMGEN-QUU425363

PATIENT

DRUGS (2)
  1. ENBREL [Suspect]
     Indication: RHEUMATOID ARTHRITIS
     Dosage: 50 MG, QWK
     Route: 058
     Dates: start: 20091016
  2. LAMOTRIGINE [Suspect]

REACTIONS (10)
  - CHILLS [None]
  - DYSPNOEA [None]
  - EYE SWELLING [None]
  - GINGIVAL PAIN [None]
  - NIGHT SWEATS [None]
  - OROPHARYNGEAL BLISTERING [None]
  - PAIN [None]
  - PNEUMONIA [None]
  - RHEUMATOID ARTHRITIS [None]
  - SWELLING FACE [None]
